FAERS Safety Report 9544021 (Version 1)
Quarter: 2013Q3

REPORT INFORMATION
  Report Type: Spontaneous
  Country: GR (occurrence: GR)
  Receive Date: 20130923
  Receipt Date: 20130923
  Transmission Date: 20140515
  Serious: Yes (Other)
  Sender: FDA-Public Use
  Company Number: GR-009507513-1212GRC002255

PATIENT
  Age: 25 Year
  Sex: Female

DRUGS (1)
  1. GRACIAL [Suspect]
     Indication: CONTRACEPTION
     Dosage: UNK
     Route: 048
     Dates: start: 201112

REACTIONS (3)
  - Visual impairment [Unknown]
  - Visual field defect [Unknown]
  - Vision blurred [Unknown]
